FAERS Safety Report 18572418 (Version 1)
Quarter: 2020Q4

REPORT INFORMATION
  Report Type: Spontaneous
  Country: CN (occurrence: CN)
  Receive Date: 20201202
  Receipt Date: 20201202
  Transmission Date: 20210114
  Serious: Yes (Other)
  Sender: FDA-Public Use
  Company Number: CN-AYTU BIOSCIENCES, INC.-2020AYT000279

PATIENT
  Age: 78 Year
  Sex: Female
  Weight: 73 kg

DRUGS (4)
  1. RABEPRAZOLE SODIUM UNKNOWN [Suspect]
     Active Substance: RABEPRAZOLE SODIUM
     Indication: GASTROINTESTINAL HAEMORRHAGE
     Dosage: 10 MG, 12 HR
     Route: 048
  2. AMLODIPINE [Concomitant]
     Active Substance: AMLODIPINE BESYLATE
     Indication: HYPERTENSION
     Dosage: UNK
  3. VALSARTAN. [Concomitant]
     Active Substance: VALSARTAN
     Indication: HYPERTENSION
     Dosage: UNK
  4. DABIGATRAN [Interacting]
     Active Substance: DABIGATRAN
     Indication: ANTICOAGULANT THERAPY
     Dosage: 110 MG, 12 HR FOR 6 WEEKS

REACTIONS (3)
  - Device related thrombosis [Recovering/Resolving]
  - Anticoagulation drug level decreased [Recovering/Resolving]
  - Drug interaction [Recovering/Resolving]
